FAERS Safety Report 18854656 (Version 2)
Quarter: 2021Q2

REPORT INFORMATION
  Report Type: Spontaneous
  Country: US (occurrence: US)
  Receive Date: 20210205
  Receipt Date: 20210415
  Transmission Date: 20210717
  Serious: Yes (Hospitalization, Other)
  Sender: FDA-Public Use
  Company Number: US-NOVOPROD-783957

PATIENT
  Age: 61 Year
  Sex: Female

DRUGS (1)
  1. OZEMPIC [Suspect]
     Active Substance: SEMAGLUTIDE
     Indication: DIABETES MELLITUS MANAGEMENT
     Dosage: 0.5 MG, QW
     Route: 058
     Dates: start: 20190919, end: 20200625

REACTIONS (1)
  - Peripheral T-cell lymphoma unspecified [Not Recovered/Not Resolved]

NARRATIVE: CASE EVENT DATE: 20200717
